FAERS Safety Report 10395959 (Version 1)
Quarter: 2014Q1

REPORT INFORMATION
  Report Type: Spontaneous
  Country: US (occurrence: None)
  Receive Date: 20130107
  Receipt Date: 20130107
  Transmission Date: 20141002
  Serious: No
  Sender: FDA-Public Use
  Company Number: PHEH2012US015817

PATIENT
  Age: 20 Year
  Sex: Female

DRUGS (3)
  1. GILENYA (FTY) CAPSULE, 0.5MG [Suspect]
     Indication: MULTIPLE SCLEROSIS
     Route: 048
     Dates: start: 20120810
  2. NIVAROMG )ETHINYLESTRADIOL, ETONOGESTREL) [Concomitant]
  3. STEROIDS NOS (NO INGREDIENTS/SUBSTANCES) [Concomitant]

REACTIONS (5)
  - Heart rate decreased [None]
  - Central nervous system lesion [None]
  - Muscle spasms [None]
  - Headache [None]
  - Multiple sclerosis relapse [None]
